FAERS Safety Report 6695103-5 (Version None)
Quarter: 2010Q2

REPORT INFORMATION
  Report Type: 
  Country: None (occurrence: None)
  Receive Date: 20100423
  Receipt Date: 20100416
  Transmission Date: 20101027
  Serious: Yes (Other)
  Sender: FDA-Public Use
  Company Number: PHHY2009FR51003

PATIENT
  Sex: Female
  Weight: 80 kg

DRUGS (4)
  1. RASILEZ [Suspect]
     Dosage: 150 MG DAILY
     Route: 048
     Dates: start: 20091014, end: 20091024
  2. LIPANTHYL [Concomitant]
  3. LANSOPRAZOLE [Concomitant]
  4. LEVOTHYROX [Concomitant]

REACTIONS (6)
  - ANGIOEDEMA [None]
  - DYSPNOEA [None]
  - HYPERSENSITIVITY [None]
  - PALPITATIONS [None]
  - RESPIRATORY DISORDER [None]
  - SENSE OF OPPRESSION [None]
